FAERS Safety Report 5194265-9 (Version None)
Quarter: 2006Q4

REPORT INFORMATION
  Report Type: 
  Country: None (occurrence: None)
  Receive Date: 20061228
  Receipt Date: 20061003
  Transmission Date: 20070319
  Serious: Yes (Death, Life-Threatening, Hospitalization, Disabling)
  Sender: FDA-Public Use
  Company Number: JP-PFIZER INC-2006120679

PATIENT
  Sex: Male
  Weight: 50 kg

DRUGS (12)
  1. ZYVOX [Suspect]
     Indication: PNEUMONIA STAPHYLOCOCCAL
     Route: 042
     Dates: start: 20050904, end: 20050911
  2. MINOCYCLINE HCL [Concomitant]
     Route: 042
     Dates: start: 20050808, end: 20050810
  3. MEROPEN [Concomitant]
     Route: 042
     Dates: start: 20050809, end: 20050821
  4. PAZUFLOXACIN MESILATE [Concomitant]
     Route: 042
     Dates: start: 20050809, end: 20050821
  5. VANCOMYCIN [Concomitant]
     Route: 042
     Dates: start: 20050818, end: 20050822
  6. FLUCONAZOLE [Concomitant]
     Route: 042
     Dates: start: 20050820, end: 20050822
  7. MICAFUNGIN [Concomitant]
     Route: 042
     Dates: start: 20050822, end: 20050825
  8. AMIKACIN SULFATE [Concomitant]
     Route: 042
     Dates: start: 20050822, end: 20050825
  9. MAXIPIME [Concomitant]
     Route: 042
     Dates: start: 20050822, end: 20050825
  10. AMPHOTERICIN B [Concomitant]
     Route: 042
     Dates: start: 20050826, end: 20050905
  11. CEFTRIAXONE SODIUM [Concomitant]
     Route: 042
     Dates: start: 20050807, end: 20050809
  12. HYDROCORTONE [Concomitant]
     Route: 042
     Dates: start: 20050807, end: 20050911

REACTIONS (6)
  - ACUTE RESPIRATORY DISTRESS SYNDROME [None]
  - BONE MARROW FAILURE [None]
  - HEPATIC ENZYME INCREASED [None]
  - MULTI-ORGAN FAILURE [None]
  - PLATELET COUNT DECREASED [None]
  - RED BLOOD CELL COUNT DECREASED [None]
